FAERS Safety Report 14529449 (Version 5)
Quarter: 2020Q3

REPORT INFORMATION
  Report Type: Report from Study
  Country: JP (occurrence: JP)
  Receive Date: 20180214
  Receipt Date: 20190215
  Transmission Date: 20201104
  Serious: Yes (Hospitalization)
  Sender: FDA-Public Use
  Company Number: JP-ASTRAZENECA-2018SE18394

PATIENT
  Age: 22931 Day
  Sex: Male

DRUGS (54)
  1. MEDI4736 [Suspect]
     Active Substance: DURVALUMAB
     Indication: SMALL CELL LUNG CANCER
     Dosage: 1500.0MG ONCE/SINGLE ADMINISTRATION
     Route: 042
     Dates: start: 20171120, end: 20171120
  2. ETOPOSIDE. [Suspect]
     Active Substance: ETOPOSIDE
     Indication: SMALL CELL LUNG CANCER
     Dosage: 100.0MG/M2 ONCE/SINGLE ADMINISTRATION
     Route: 065
     Dates: start: 20171013, end: 20171013
  3. ETOPOSIDE. [Suspect]
     Active Substance: ETOPOSIDE
     Indication: SMALL CELL LUNG CANCER
     Dosage: 80.0MG/M2 ONCE/SINGLE ADMINISTRATION
     Route: 065
     Dates: start: 20171220, end: 20171220
  4. DEXART [Concomitant]
     Active Substance: DEXAMETHASONE SODIUM PHOSPHATE
     Indication: PREMEDICATION
     Dosage: 6.6MG AS REQUIRED
     Route: 042
     Dates: start: 20171120, end: 20171120
  5. DEXART [Concomitant]
     Active Substance: DEXAMETHASONE SODIUM PHOSPHATE
     Indication: PREMEDICATION
     Dosage: 6.6MG AS REQUIRED
     Route: 042
     Dates: start: 20171219, end: 20171219
  6. ANEMETORO [Concomitant]
     Indication: PNEUMONIA
     Route: 042
     Dates: start: 20171027, end: 20171110
  7. ETOPOSIDE. [Suspect]
     Active Substance: ETOPOSIDE
     Indication: SMALL CELL LUNG CANCER
     Dosage: 80.0MG/M2 ONCE/SINGLE ADMINISTRATION
     Route: 065
     Dates: start: 20171221, end: 20171221
  8. CARBOPLATIN. [Suspect]
     Active Substance: CARBOPLATIN
     Indication: SMALL CELL LUNG CANCER
     Dosage: 4 AUC
     Route: 065
     Dates: start: 20180124, end: 20180124
  9. REBAMIPIDE [Concomitant]
     Active Substance: REBAMIPIDE
     Indication: PROPHYLAXIS
     Route: 048
  10. ALOXI [Concomitant]
     Active Substance: PALONOSETRON HYDROCHLORIDE
     Indication: PREMEDICATION
     Dosage: 0.75MG AS REQUIRED
     Route: 042
     Dates: start: 20171011
  11. DEXART [Concomitant]
     Active Substance: DEXAMETHASONE SODIUM PHOSPHATE
     Indication: PREMEDICATION
     Dosage: 6.6MG AS REQUIRED
     Route: 042
     Dates: start: 20171011
  12. TRAMSETO COMBINATION [Concomitant]
     Indication: NEURALGIA
     Dosage: 1.0DF AS REQUIRED
     Route: 048
     Dates: start: 20171014
  13. EMEND [Concomitant]
     Active Substance: APREPITANT
     Indication: PREMEDICATION
     Dosage: 125.0MG AS REQUIRED
     Route: 048
     Dates: start: 20171013
  14. EMEND [Concomitant]
     Active Substance: APREPITANT
     Indication: PREMEDICATION
     Dosage: 80.0MG ONCE/SINGLE ADMINISTRATION
     Route: 048
     Dates: start: 20171121, end: 20171122
  15. CLOSTRIDIUM BUTYRICUM [Concomitant]
     Active Substance: CLOSTRIDIUM BUTYRICUM SPORES STRAIN M-55
     Indication: ENTEROCOLITIS
     Route: 048
     Dates: start: 20171201
  16. MEDI4736 [Suspect]
     Active Substance: DURVALUMAB
     Indication: SMALL CELL LUNG CANCER
     Dosage: 1500.0MG ONCE/SINGLE ADMINISTRATION
     Route: 042
     Dates: start: 20171011, end: 20171011
  17. ETOPOSIDE. [Suspect]
     Active Substance: ETOPOSIDE
     Indication: SMALL CELL LUNG CANCER
     Dosage: 80.0MG/M2 ONCE/SINGLE ADMINISTRATION
     Route: 065
     Dates: start: 20180124, end: 20180124
  18. ETOPOSIDE. [Suspect]
     Active Substance: ETOPOSIDE
     Indication: SMALL CELL LUNG CANCER
     Dosage: 80.0MG/M2 ONCE/SINGLE ADMINISTRATION
     Route: 065
     Dates: start: 20180125, end: 20180125
  19. ETOPOSIDE. [Suspect]
     Active Substance: ETOPOSIDE
     Indication: SMALL CELL LUNG CANCER
     Dosage: 80.0MG/M2 ONCE/SINGLE ADMINISTRATION
     Route: 065
     Dates: start: 20180126, end: 20180126
  20. CARBOPLATIN. [Suspect]
     Active Substance: CARBOPLATIN
     Indication: SMALL CELL LUNG CANCER
     Dosage: 4 AUC
     Route: 065
     Dates: start: 20171219, end: 20171219
  21. BISOPROLOL FUMARATE. [Concomitant]
     Active Substance: BISOPROLOL FUMARATE
     Indication: HYPERTENSION
     Route: 048
  22. ALOXI [Concomitant]
     Active Substance: PALONOSETRON HYDROCHLORIDE
     Indication: PREMEDICATION
     Dosage: 0.75MG AS REQUIRED
     Route: 042
     Dates: start: 20171120, end: 20171122
  23. PRINPERAN [Concomitant]
     Indication: PREMEDICATION
     Dosage: 10.0MG AS REQUIRED
     Route: 042
     Dates: start: 20171011
  24. EMEND [Concomitant]
     Active Substance: APREPITANT
     Indication: PREMEDICATION
     Dosage: 80.0MG AS REQUIRED
     Route: 048
     Dates: start: 20171012
  25. TREMELIMUMAB. [Suspect]
     Active Substance: TREMELIMUMAB
     Indication: SMALL CELL LUNG CANCER
     Dosage: 75.0MG ONCE/SINGLE ADMINISTRATION
     Route: 042
     Dates: start: 20171011, end: 20171011
  26. TREMELIMUMAB. [Suspect]
     Active Substance: TREMELIMUMAB
     Indication: SMALL CELL LUNG CANCER
     Dosage: 75.0MG ONCE/SINGLE ADMINISTRATION
     Route: 042
     Dates: start: 20171120, end: 20171120
  27. ETOPOSIDE. [Suspect]
     Active Substance: ETOPOSIDE
     Indication: SMALL CELL LUNG CANCER
     Dosage: 100.0MG/M2 ONCE/SINGLE ADMINISTRATION
     Route: 065
     Dates: start: 20171121, end: 20171121
  28. ALOXI [Concomitant]
     Active Substance: PALONOSETRON HYDROCHLORIDE
     Indication: PREMEDICATION
     Dosage: 0.75MG AS REQUIRED
     Route: 042
     Dates: start: 20171219, end: 20171221
  29. FLUNITRAZEPAM [Concomitant]
     Active Substance: FLUNITRAZEPAM
     Indication: INSOMNIA
     Dosage: 1.0MG AS REQUIRED
     Route: 048
     Dates: start: 20171023
  30. BESOFTEN [Concomitant]
     Active Substance: PENTOSAN POLYSULFATE SODIUM
     Indication: NUTRITIONAL SUPPLEMENTATION
     Dosage: 1 REASONABLE AMOUNT AS REAUIRED
     Route: 061
     Dates: start: 20171120
  31. DAIPHEN [Concomitant]
     Active Substance: SULFAMETHOXAZOLE\TRIMETHOPRIM
     Indication: COLITIS
     Dosage: 1 TABLET, DAILY
     Route: 048
     Dates: start: 20180110
  32. MEDI4736 [Suspect]
     Active Substance: DURVALUMAB
     Indication: SMALL CELL LUNG CANCER
     Dosage: 1500.0MG ONCE/SINGLE ADMINISTRATION
     Route: 042
     Dates: start: 20171219, end: 20171219
  33. TREMELIMUMAB. [Suspect]
     Active Substance: TREMELIMUMAB
     Indication: SMALL CELL LUNG CANCER
     Dosage: 75.0MG ONCE/SINGLE ADMINISTRATION
     Route: 042
     Dates: start: 20171219, end: 20171219
  34. ETOPOSIDE. [Suspect]
     Active Substance: ETOPOSIDE
     Indication: SMALL CELL LUNG CANCER
     Dosage: 100.0MG/M2 ONCE/SINGLE ADMINISTRATION
     Route: 065
     Dates: start: 20171012, end: 20171012
  35. ETOPOSIDE. [Suspect]
     Active Substance: ETOPOSIDE
     Indication: SMALL CELL LUNG CANCER
     Dosage: 100.0MG/M2 ONCE/SINGLE ADMINISTRATION
     Route: 065
     Dates: start: 20171122, end: 20171122
  36. MOHRUS TAPE [Concomitant]
     Active Substance: KETOPROFEN
     Indication: SMALL CELL LUNG CANCER
     Dosage: 40.0MG AS REQUIRED
     Route: 061
  37. INDAPAMIDE. [Concomitant]
     Active Substance: INDAPAMIDE
     Indication: HYPERTENSION
     Route: 048
  38. NEXIUM [Concomitant]
     Active Substance: ESOMEPRAZOLE MAGNESIUM
     Indication: PROPHYLAXIS
     Route: 048
     Dates: start: 20171004
  39. FOSMISN [Concomitant]
     Indication: COLITIS
     Route: 042
     Dates: start: 20180103
  40. ETOPOSIDE. [Suspect]
     Active Substance: ETOPOSIDE
     Indication: SMALL CELL LUNG CANCER
     Dosage: 100.0MG/M2 ONCE/SINGLE ADMINISTRATION
     Route: 065
     Dates: start: 20171011, end: 20171011
  41. ETOPOSIDE. [Suspect]
     Active Substance: ETOPOSIDE
     Indication: SMALL CELL LUNG CANCER
     Dosage: 100.0MG/M2 ONCE/SINGLE ADMINISTRATION
     Route: 065
     Dates: start: 20171120, end: 20171120
  42. ETOPOSIDE. [Suspect]
     Active Substance: ETOPOSIDE
     Indication: SMALL CELL LUNG CANCER
     Dosage: 80.0MG/M2 ONCE/SINGLE ADMINISTRATION
     Route: 065
     Dates: start: 20171219, end: 20171219
  43. ALLOPURINOL. [Concomitant]
     Active Substance: ALLOPURINOL
     Indication: HYPERURICAEMIA
     Route: 048
  44. EMEND [Concomitant]
     Active Substance: APREPITANT
     Indication: PREMEDICATION
     Dosage: 125.0MG ONCE/SINGLE ADMINISTRATION
     Route: 048
     Dates: start: 20171120, end: 20171120
  45. PREDONIN [Concomitant]
     Active Substance: PREDNISOLONE
     Indication: COLITIS
     Route: 048
     Dates: start: 20180124, end: 20180220
  46. PREDONIN [Concomitant]
     Active Substance: PREDNISOLONE
     Indication: COLITIS
     Route: 048
     Dates: start: 20180221, end: 20180228
  47. LEVOFLOXACIN. [Concomitant]
     Active Substance: LEVOFLOXACIN
     Indication: INFECTION PROPHYLAXIS
     Route: 048
     Dates: start: 20180206
  48. CARBOPLATIN. [Suspect]
     Active Substance: CARBOPLATIN
     Indication: SMALL CELL LUNG CANCER
     Dosage: 5 AUC
     Route: 065
     Dates: start: 20171011, end: 20171011
  49. CARBOPLATIN. [Suspect]
     Active Substance: CARBOPLATIN
     Indication: SMALL CELL LUNG CANCER
     Dosage: 5 AUC
     Route: 065
     Dates: start: 20171120, end: 20171120
  50. VALSARTAN. [Concomitant]
     Active Substance: VALSARTAN
     Indication: HYPERTENSION
     Route: 048
  51. KENALOG IN ORABASE [Concomitant]
     Active Substance: TRIAMCINOLONE ACETONIDE
     Indication: STOMATITIS
     Dosage: 1, REASONABLE AMOUNT, AS REQUIRED
     Route: 002
     Dates: start: 20171028
  52. LNESUTA [Concomitant]
     Indication: INSOMNIA
     Dosage: 1.0MG AS REQUIRED
     Route: 048
     Dates: start: 20171013
  53. EMEND [Concomitant]
     Active Substance: APREPITANT
     Indication: PREMEDICATION
     Dosage: 125.0MG ONCE/SINGLE ADMINISTRATION
     Route: 048
     Dates: start: 20171219, end: 20171219
  54. EMEND [Concomitant]
     Active Substance: APREPITANT
     Indication: PREMEDICATION
     Dosage: 80.0MG ONCE/SINGLE ADMINISTRATION
     Route: 048
     Dates: start: 20171220, end: 20171221

REACTIONS (1)
  - Peritonitis [Recovered/Resolved]

NARRATIVE: CASE EVENT DATE: 20180208
